FAERS Safety Report 9132475 (Version 2)
Quarter: 2013Q1

REPORT INFORMATION
  Report Type: Spontaneous
  Country: JP (occurrence: JP)
  Receive Date: 20130301
  Receipt Date: 20130307
  Transmission Date: 20140127
  Serious: Yes (Other)
  Sender: FDA-Public Use
  Company Number: JP-BAYER-2013-022406

PATIENT
  Age: 61 Year
  Sex: Female

DRUGS (6)
  1. NIFEDIPINE [Suspect]
     Indication: DRUG WITHDRAWAL SYNDROME
     Route: 048
  2. DEXMEDETOMIDINE HYDROCHLORIDE [Concomitant]
     Dosage: UNK
  3. FENTANYL [Concomitant]
     Dosage: UNK
  4. PROPOFOL [Concomitant]
  5. MIDAZOLAM [Concomitant]
     Dosage: UNK
  6. DILTIAZEM HYDROCHLORIDE [Concomitant]
     Indication: DRUG WITHDRAWAL SYNDROME

REACTIONS (1)
  - Shock [Recovering/Resolving]
